FAERS Safety Report 8365720-5 (Version None)
Quarter: 2012Q2

REPORT INFORMATION
  Report Type: 
  Country: None (occurrence: None)
  Receive Date: 20120516
  Receipt Date: 20120503
  Transmission Date: 20120825
  Serious: Yes (Other)
  Sender: FDA-Public Use
  Company Number: GB-MYLANLABS-2012S1009604

PATIENT
  Age: 65 Month

DRUGS (1)
  1. METHADONE HCL [Suspect]
     Route: 064

REACTIONS (3)
  - VISUAL ACUITY REDUCED [None]
  - NYSTAGMUS [None]
  - MATERNAL EXPOSURE DURING PREGNANCY [None]
